FAERS Safety Report 9381246 (Version 1)
Quarter: 2013Q3

REPORT INFORMATION
  Report Type: Spontaneous
  Country: US (occurrence: US)
  Receive Date: 20130703
  Receipt Date: 20130703
  Transmission Date: 20140515
  Serious: No
  Sender: FDA-Public Use
  Company Number: US-PFIZER INC-2013194109

PATIENT
  Age: 60 Year
  Sex: Female

DRUGS (8)
  1. CARBOPLATIN [Suspect]
     Indication: BREAST CANCER
     Dosage: UNK
  2. DOCETAXEL [Suspect]
     Indication: BREAST CANCER
     Dosage: UNK
  3. HERCEPTIN [Suspect]
     Indication: BREAST CANCER
     Dosage: UNK
  4. BUPROPION [Concomitant]
     Dosage: UNK
  5. ALPRAZOLAM [Concomitant]
     Dosage: UNK, (ER AND IMMEDIATE RELEASE PRN)
  6. SERTRALINE [Concomitant]
     Dosage: UNK
  7. AMPHETAMINE [Concomitant]
     Dosage: UNK, (XR AND IMMEDIATE RELEASE)
  8. TEMAZEPAM [Concomitant]
     Dosage: UNK

REACTIONS (1)
  - Nausea [Unknown]
